FAERS Safety Report 23537746 (Version 1)
Quarter: 2024Q1

REPORT INFORMATION
  Report Type: Other
  Country: DE (occurrence: None)
  Receive Date: 20240219
  Receipt Date: 20240219
  Transmission Date: 20240410
  Serious: Yes (Other)
  Sender: FDA-Public Use
  Company Number: DE-ROCHE-2718680

PATIENT
  Age: 42 Year
  Sex: Female
  Weight: 89 kg

DRUGS (12)
  1. PERJETA [Suspect]
     Active Substance: PERTUZUMAB
     Indication: Breast cancer
     Dosage: LAST DOSE OF PERTUZUMAB PRIOR TO EVENT WAS ON 15/SEP/2020
     Route: 065
     Dates: start: 20200915, end: 20220310
  2. PERJETA [Suspect]
     Active Substance: PERTUZUMAB
     Route: 065
     Dates: start: 20200825, end: 20200825
  3. PERJETA [Suspect]
     Active Substance: PERTUZUMAB
     Route: 065
     Dates: start: 20201006
  4. PERJETA [Suspect]
     Active Substance: PERTUZUMAB
     Dosage: LAST DOSE OF PRIOR TO THE ADVERSE EVENT 28/OCT/2021?PER CYCLE
     Route: 065
  5. PERJETA [Suspect]
     Active Substance: PERTUZUMAB
     Dosage: LAST DOSE OF PRIOR TO THE ADVERSE EVENT  29/JUL/2021
     Route: 065
  6. TRAZIMERA [Suspect]
     Active Substance: TRASTUZUMAB-QYYP
     Indication: Breast cancer
     Dosage: LAST DOSE OF TRASTUZUMAB PRIOR TO EVENT WAS ON 15/SEP/2020
     Route: 065
     Dates: start: 20200815
  7. TRAZIMERA [Suspect]
     Active Substance: TRASTUZUMAB-QYYP
     Route: 065
     Dates: start: 20200825
  8. TRAZIMERA [Suspect]
     Active Substance: TRASTUZUMAB-QYYP
     Route: 065
     Dates: start: 20201006
  9. TRAZIMERA [Suspect]
     Active Substance: TRASTUZUMAB-QYYP
     Dosage: LAST DOSE OF PRIOR TO THE ADVERSE EVENT  29/JUL/2021
     Route: 065
  10. TRAZIMERA [Suspect]
     Active Substance: TRASTUZUMAB-QYYP
     Dosage: LAST DOSE OF PRIOR TO THE ADVERSE EVENT 28/OCT/2021
     Route: 065
  11. ADO-TRASTUZUMAB EMTANSINE [Suspect]
     Active Substance: ADO-TRASTUZUMAB EMTANSINE
     Indication: Breast cancer
     Dosage: DATE OF LAST APPLICATION PRIOR EVENT: 02/JUN/2022?DATE OF LAST APPLICATION PRIOR EVENT: 21/APR/2022
     Route: 042
     Dates: start: 20220331, end: 20221208
  12. ADO-TRASTUZUMAB EMTANSINE [Suspect]
     Active Substance: ADO-TRASTUZUMAB EMTANSINE
     Dosage: DATE OF LAST APPLICATION PRIOR EVENT: 21/APR/2022
     Route: 042
     Dates: start: 20220331

REACTIONS (18)
  - Herpes zoster disseminated [Recovered/Resolved]
  - Rash [Recovered/Resolved]
  - Urinary incontinence [Recovered/Resolved]
  - Epistaxis [Unknown]
  - Dyspnoea exertional [Recovered/Resolved]
  - Diarrhoea [Recovered/Resolved]
  - Dry skin [Recovered/Resolved]
  - Dyspnoea [Recovered/Resolved]
  - Rash maculo-papular [Recovered/Resolved]
  - Diarrhoea [Recovered/Resolved]
  - Pruritus [Recovered/Resolved]
  - Fatigue [Recovered/Resolved]
  - Neuropathy peripheral [Unknown]
  - Nausea [Recovered/Resolved]
  - Headache [Recovered/Resolved]
  - Disturbance in attention [Recovered/Resolved]
  - Visual impairment [Recovered/Resolved]
  - Paraesthesia [Recovered/Resolved]

NARRATIVE: CASE EVENT DATE: 20200915
